FAERS Safety Report 10346559 (Version 1)
Quarter: 2014Q3

REPORT INFORMATION
  Report Type: Spontaneous
  Country: CA (occurrence: CA)
  Receive Date: 20140729
  Receipt Date: 20140729
  Transmission Date: 20150326
  Serious: Yes (Hospitalization, Other)
  Sender: FDA-Public Use
  Company Number: CA-AMGEN INC.-CANSP2014055584

PATIENT
  Age: 88 Year
  Sex: Female

DRUGS (1)
  1. PROLIA [Suspect]
     Active Substance: DENOSUMAB
     Indication: OSTEOPOROSIS POSTMENOPAUSAL
     Dosage: 60 MG, Q6MO
     Route: 058
     Dates: start: 20120607

REACTIONS (6)
  - Loss of consciousness [Unknown]
  - Fluid intake reduced [Unknown]
  - Appendicitis perforated [Unknown]
  - Decreased appetite [Unknown]
  - Renal failure [Unknown]
  - Drug ineffective [Unknown]
